FAERS Safety Report 7909458-4 (Version None)
Quarter: 2011Q4

REPORT INFORMATION
  Report Type: 
  Country: None (occurrence: None)
  Receive Date: 20111111
  Receipt Date: 20111107
  Transmission Date: 20120403
  Serious: Yes (Other)
  Sender: FDA-Public Use
  Company Number: US-GLAXOSMITHKLINE-A0952497A

PATIENT
  Age: 74 Year
  Sex: Female

DRUGS (1)
  1. ALLI [Suspect]
     Indication: WEIGHT LOSS DIET
     Route: 048

REACTIONS (19)
  - PAROSMIA [None]
  - RECTAL HAEMORRHAGE [None]
  - TREATMENT NONCOMPLIANCE [None]
  - NAUSEA [None]
  - VOMITING [None]
  - MALAISE [None]
  - CHOLELITHIASIS [None]
  - DRUG INEFFECTIVE [None]
  - RECTAL DISCHARGE [None]
  - GASTROINTESTINAL DISORDER [None]
  - SLEEP DISORDER [None]
  - DIARRHOEA [None]
  - DYSPEPSIA [None]
  - CHOLECYSTECTOMY [None]
  - ABDOMINAL PAIN UPPER [None]
  - GASTRIC ULCER [None]
  - GASTRIC DISORDER [None]
  - HAEMORRHOIDS [None]
  - FAECAL INCONTINENCE [None]
